FAERS Safety Report 9456360 (Version 1)
Quarter: 2013Q3

REPORT INFORMATION
  Report Type: Spontaneous
  Country: US (occurrence: US)
  Receive Date: 20130813
  Receipt Date: 20130813
  Transmission Date: 20140515
  Serious: No
  Sender: FDA-Public Use
  Company Number: US-PFIZER INC-2013234833

PATIENT
  Age: 50 Year
  Sex: Female
  Weight: 75.28 kg

DRUGS (8)
  1. NICOTROL NASAL SPRAY [Suspect]
     Indication: SMOKING CESSATION THERAPY
     Dosage: UNK
     Route: 045
     Dates: end: 20130810
  2. PREDNISONE [Concomitant]
     Dosage: 20 MG, 2X/DAY
  3. BENZONATATE [Concomitant]
     Indication: COUGH
     Dosage: 200 MG, 3X/DAY
  4. AMOXICILLIN [Concomitant]
     Dosage: UNK, 2X/DAY
  5. LORTAB [Concomitant]
     Indication: ARTHRITIS
     Dosage: UNK
  6. MELOXICAM [Concomitant]
     Indication: ARTHRITIS
     Dosage: 15 MG, UNK
  7. SPIRIVA [Concomitant]
     Dosage: UNK
  8. ADVAIR [Concomitant]
     Dosage: 500 MG, 2X/DAY

REACTIONS (3)
  - Arthritis [Unknown]
  - Cough [Unknown]
  - Confusional state [Unknown]
